FAERS Safety Report 8172213-7 (Version None)
Quarter: 2012Q1

REPORT INFORMATION
  Report Type: 
  Country: None (occurrence: None)
  Receive Date: 20120228
  Receipt Date: 20120211
  Transmission Date: 20120608
  Serious: Yes (Death, Other)
  Sender: FDA-Public Use
  Company Number: PHHY2012IN013338

PATIENT
  Sex: Female

DRUGS (1)
  1. IMATINIB MESYLATE [Suspect]
     Indication: BLAST CRISIS IN MYELOGENOUS LEUKAEMIA
     Dosage: 600 MG, DAILY

REACTIONS (16)
  - SPLENOMEGALY [None]
  - VENOUS PRESSURE JUGULAR INCREASED [None]
  - TACHYCARDIA [None]
  - CARDIAC FAILURE CONGESTIVE [None]
  - GALLOP RHYTHM PRESENT [None]
  - WHITE BLOOD CELL COUNT INCREASED [None]
  - HAEMOGLOBIN DECREASED [None]
  - SWELLING FACE [None]
  - CREPITATIONS [None]
  - PALLOR [None]
  - WHEEZING [None]
  - DYSPNOEA [None]
  - GENERALISED OEDEMA [None]
  - HEPATOMEGALY [None]
  - PULMONARY OEDEMA [None]
  - LYMPHADENOPATHY [None]
